FAERS Safety Report 20684334 (Version 11)
Quarter: 2025Q2

REPORT INFORMATION
  Report Type: Report from Study
  Country: US (occurrence: US)
  Receive Date: 20220407
  Receipt Date: 20250513
  Transmission Date: 20250717
  Serious: Yes (Hospitalization, Other)
  Sender: TAKEDA
  Company Number: US-TAKEDA-2022TUS021952

PATIENT
  Age: 71 Year
  Sex: Female
  Weight: 61 kg

DRUGS (52)
  1. HUMAN IMMUNOGLOBULIN G [Suspect]
     Active Substance: HUMAN IMMUNOGLOBULIN G
     Indication: Immunodeficiency common variable
     Dosage: 8 GRAM, 1/WEEK
     Dates: start: 20171012
  2. HUMAN IMMUNOGLOBULIN G [Suspect]
     Active Substance: HUMAN IMMUNOGLOBULIN G
     Indication: Primary immunodeficiency syndrome
     Dosage: UNK UNK, 1/WEEK
     Dates: start: 20171019
  3. HUMAN IMMUNOGLOBULIN G [Suspect]
     Active Substance: HUMAN IMMUNOGLOBULIN G
     Dosage: 8 GRAM, 1/WEEK
     Dates: start: 20171024
  4. HUMAN IMMUNOGLOBULIN G [Suspect]
     Active Substance: HUMAN IMMUNOGLOBULIN G
     Dosage: 8 GRAM, 1/WEEK
  5. HUMAN IMMUNOGLOBULIN G [Suspect]
     Active Substance: HUMAN IMMUNOGLOBULIN G
     Dosage: UNK UNK, 1/WEEK
  6. HUMAN IMMUNOGLOBULIN G [Suspect]
     Active Substance: HUMAN IMMUNOGLOBULIN G
     Dosage: 8 GRAM, 1/WEEK
     Dates: end: 20240424
  7. FOSAMAX [Suspect]
     Active Substance: ALENDRONATE SODIUM
     Indication: Product used for unknown indication
  8. FORTEO [Suspect]
     Active Substance: TERIPARATIDE
     Indication: Product used for unknown indication
  9. ACETAMINOPHEN [Concomitant]
     Active Substance: ACETAMINOPHEN
  10. ZYRTEC [Concomitant]
     Active Substance: CETIRIZINE HYDROCHLORIDE
  11. SINGULAIR [Concomitant]
     Active Substance: MONTELUKAST SODIUM
  12. LANSOPRAZOLE [Concomitant]
     Active Substance: LANSOPRAZOLE
  13. VITAMIN E [Concomitant]
     Active Substance: .ALPHA.-TOCOPHEROL
  14. MAGNESIUM [Concomitant]
     Active Substance: MAGNESIUM
  15. ALBUTEROL SULFATE [Concomitant]
     Active Substance: ALBUTEROL SULFATE
  16. Magnesium elemental [Concomitant]
  17. TRELEGY ELLIPTA [Concomitant]
     Active Substance: FLUTICASONE FUROATE\UMECLIDINIUM BROMIDE\VILANTEROL TRIFENATATE
  18. ATORVASTATIN [Concomitant]
     Active Substance: ATORVASTATIN
  19. SODIUM CHLORIDE [Concomitant]
     Active Substance: SODIUM CHLORIDE
  20. LIDOCAINE [Concomitant]
     Active Substance: LIDOCAINE
  21. FORTEO [Concomitant]
     Active Substance: TERIPARATIDE
  22. CALCIUM [Concomitant]
     Active Substance: CALCIUM
  23. CLONAZEPAM [Concomitant]
     Active Substance: CLONAZEPAM
  24. DIPHENHYDRAMINE HYDROCHLORIDE [Concomitant]
     Active Substance: DIPHENHYDRAMINE HYDROCHLORIDE
  25. NIACIN [Concomitant]
     Active Substance: NIACIN
  26. SYNTHROID [Concomitant]
     Active Substance: LEVOTHYROXINE SODIUM
  27. MELATONIN [Concomitant]
     Active Substance: MELATONIN
  28. CALTRATE [Concomitant]
     Active Substance: CALCIUM CARBONATE
  29. BELSOMRA [Concomitant]
     Active Substance: SUVOREXANT
  30. VITAMIN D [Concomitant]
     Active Substance: VITAMIN D NOS
  31. TRINTELLIX [Concomitant]
     Active Substance: VORTIOXETINE HYDROBROMIDE
  32. PREDNISONE [Concomitant]
     Active Substance: PREDNISONE
  33. FASENRA [Concomitant]
     Active Substance: BENRALIZUMAB
  34. EPIPEN [Concomitant]
     Active Substance: EPINEPHRINE
  35. PANTOPRAZOLE [Concomitant]
     Active Substance: PANTOPRAZOLE
  36. MUCUS RELIEF [Concomitant]
     Active Substance: GUAIFENESIN
  37. DOCONEXENT\ICOSAPENT [Concomitant]
     Active Substance: DOCONEXENT\ICOSAPENT
  38. LYRICA [Concomitant]
     Active Substance: PREGABALIN
  39. VITAMIN D2 [Concomitant]
     Active Substance: ERGOCALCIFEROL
  40. ALBUTEROL [Concomitant]
     Active Substance: ALBUTEROL
  41. NAMENDA [Concomitant]
     Active Substance: MEMANTINE HYDROCHLORIDE
  42. DEPLIN [Concomitant]
     Active Substance: LEVOMEFOLATE CALCIUM
  43. Lmx [Concomitant]
  44. EPINEPHRINE [Concomitant]
     Active Substance: EPINEPHRINE
  45. VITAMIN B COMPLEX [Concomitant]
     Active Substance: CYANOCOBALAMIN\DEXPANTHENOL\NIACINAMIDE\PYRIDOXINE HYDROCHLORIDE\RIBOFLAVIN 5^-PHOSPHATE SODIUM\THIA
  46. VITAMIN C [Concomitant]
     Active Substance: ASCORBIC ACID
  47. ASPIRIN [Concomitant]
     Active Substance: ASPIRIN
  48. IRON [Concomitant]
     Active Substance: IRON
  49. OYSTER [Concomitant]
     Active Substance: OYSTER, UNSPECIFIED
  50. Sm [Concomitant]
  51. DIPHENHYDRAMINE [Concomitant]
     Active Substance: DIPHENHYDRAMINE
  52. VITAMIN D3 [Concomitant]
     Active Substance: CHOLECALCIFEROL

REACTIONS (40)
  - Sepsis [Unknown]
  - Bronchoscopy [Unknown]
  - Pneumonia [Unknown]
  - Chronic cutaneous lupus erythematosus [Unknown]
  - Thrombosis [Unknown]
  - Scleroderma [Unknown]
  - Bronchiectasis [Unknown]
  - Cellulitis [Unknown]
  - Osteonecrosis of jaw [Unknown]
  - Infection [Unknown]
  - Herpes zoster [Unknown]
  - Product dose omission issue [Unknown]
  - Inflammation [Unknown]
  - Infusion related reaction [Unknown]
  - Illness [Unknown]
  - Angiopathy [Unknown]
  - Weight decreased [Unknown]
  - Multiple allergies [Unknown]
  - Limb injury [Unknown]
  - Infusion site scar [Unknown]
  - Needle issue [Unknown]
  - Tooth infection [Unknown]
  - Contusion [Unknown]
  - Erythema [Unknown]
  - Lung disorder [Unknown]
  - Onychoclasis [Unknown]
  - Movement disorder [Unknown]
  - Skin discolouration [Unknown]
  - Suspected COVID-19 [Unknown]
  - Lacrimation increased [Unknown]
  - Eye irritation [Recovered/Resolved]
  - Dermatitis contact [Unknown]
  - Insurance issue [Unknown]
  - Skin burning sensation [Unknown]
  - Wrong technique in product usage process [Unknown]
  - Visual impairment [Recovered/Resolved]
  - Pain [Unknown]
  - Infusion site erythema [Unknown]
  - Pruritus [Unknown]
  - Dizziness [Unknown]

NARRATIVE: CASE EVENT DATE: 20210722
